FAERS Safety Report 10933552 (Version 1)
Quarter: 2015Q1

REPORT INFORMATION
  Report Type: Spontaneous
  Country: US (occurrence: US)
  Receive Date: 20150320
  Receipt Date: 20150320
  Transmission Date: 20150721
  Serious: No
  Sender: FDA-Public Use
  Company Number: US-GLAXOSMITHKLINE-US2015GSK016876

PATIENT

DRUGS (3)
  1. VIMPAT [Concomitant]
     Active Substance: LACOSAMIDE
  2. EPILIM [Concomitant]
     Active Substance: VALPROATE SODIUM
  3. LAMICTAL [Suspect]
     Active Substance: LAMOTRIGINE

REACTIONS (3)
  - Diplopia [Unknown]
  - Dizziness [Unknown]
  - Headache [Unknown]
